FAERS Safety Report 15157077 (Version 3)
Quarter: 2019Q3

REPORT INFORMATION
  Report Type: Spontaneous
  Country: US (occurrence: US)
  Receive Date: 20180718
  Receipt Date: 20190918
  Transmission Date: 20191004
  Serious: No
  Sender: FDA-Public Use
  Company Number: US-AMGEN-USASP2018096431

PATIENT
  Age: 65 Year
  Sex: Female

DRUGS (11)
  1. VITAMIN B12 [Concomitant]
     Active Substance: CYANOCOBALAMIN
     Dosage: UNK
  2. TRAMADOL HCL [Concomitant]
     Active Substance: TRAMADOL HYDROCHLORIDE
     Dosage: UNK
  3. CYANOCOBALAMIN;FOLIC ACID [Concomitant]
     Dosage: UNK
  4. SULFASALAZINE DELAYED-RELEASE [Concomitant]
     Active Substance: SULFASALAZINE
     Dosage: 500 MILLIGRAM, UNK
  5. ALPHA LIPOIC ACID [Concomitant]
     Active Substance: .ALPHA.-LIPOIC ACID
     Dosage: UNK
  6. QUESTRAN [Concomitant]
     Active Substance: CHOLESTYRAMINE
     Dosage: UNK
  7. GRAPE SEED [Concomitant]
     Active Substance: HERBALS\VITIS VINIFERA SEED
     Dosage: UNK
  8. XANAX [Concomitant]
     Active Substance: ALPRAZOLAM
     Dosage: UNK
  9. ENBREL [Suspect]
     Active Substance: ETANERCEPT
     Indication: RHEUMATOID ARTHRITIS
     Dosage: 25 MILLIGRAM, 2 TIMES/WK, SPACING THE INJECTIONS THREE OR FOUR DAYS APART
     Route: 058
     Dates: start: 20140801
  10. ENBREL [Suspect]
     Active Substance: ETANERCEPT
     Dosage: 25 MILLIGRAM, 2 TIMES/WK, SPACING THE INJECTIONS THREE OR FOUR DAYS APART
     Route: 058
  11. METHYLPRED [Concomitant]
     Active Substance: METHYLPREDNISOLONE
     Dosage: 4 MILLIGRAM, UNK

REACTIONS (1)
  - Nodule [Recovered/Resolved]
